FAERS Safety Report 7645353-6 (Version None)
Quarter: 2011Q3

REPORT INFORMATION
  Report Type: 
  Country: None (occurrence: None)
  Receive Date: 20110729
  Receipt Date: 20110726
  Transmission Date: 20111222
  Serious: Yes (Hospitalization)
  Sender: FDA-Public Use
  Company Number: US-BRISTOL-MYERS SQUIBB COMPANY-13395033

PATIENT
  Age: 70 Year
  Sex: Female
  Weight: 47 kg

DRUGS (2)
  1. ERBITUX [Suspect]
     Indication: HEAD AND NECK CANCER
     Dosage: LAST DOSE:16MAY2006
     Dates: start: 20060419
  2. CISPLATIN [Suspect]
     Indication: HEAD AND NECK CANCER
     Dosage: GIVEN DAYS 1 AND 22. LAST DOSE: 16MAY2006
     Dates: start: 20060419

REACTIONS (4)
  - INAPPROPRIATE ANTIDIURETIC HORMONE SECRETION [None]
  - HYPONATRAEMIA [None]
  - FATIGUE [None]
  - MUCOSAL INFLAMMATION [None]
